FAERS Safety Report 8726618 (Version 5)
Quarter: 2013Q2

REPORT INFORMATION
  Report Type: Spontaneous
  Country: US (occurrence: US)
  Receive Date: 20120816
  Receipt Date: 20130430
  Transmission Date: 20140414
  Serious: Yes (Hospitalization)
  Sender: FDA-Public Use
  Company Number: US-B.I. PHARMACEUTICALS,INC./RIDGEFIELD-2012-BP-18723BP

PATIENT
  Sex: Female
  Weight: 104.33 kg

DRUGS (14)
  1. PRADAXA [Suspect]
     Indication: ANTICOAGULANT THERAPY
     Dosage: 300 MG
     Route: 048
     Dates: start: 20110728, end: 20110829
  2. PRADAXA [Suspect]
     Indication: ATRIAL FIBRILLATION
  3. VALIUM [Concomitant]
  4. TIR-COR [Concomitant]
     Dates: start: 2010
  5. EFFEXOR [Concomitant]
     Dates: start: 1994
  6. FUROSEMIDE [Concomitant]
     Dates: start: 1994
  7. ZETIA [Concomitant]
     Dates: start: 2009
  8. LEVOTHYROXINE SODIUM [Concomitant]
     Dates: start: 2008
  9. POTASSIUM CHLORIDE [Concomitant]
     Dates: start: 1994
  10. NEXIUM [Concomitant]
     Dates: start: 2003
  11. GABAPENTIN [Concomitant]
     Dates: start: 1988
  12. SPIRIVA [Concomitant]
     Dates: start: 2000, end: 2013
  13. LOVAZA [Concomitant]
     Dates: start: 2010, end: 2012
  14. ASPIRIN [Concomitant]
     Dosage: 81 MG

REACTIONS (4)
  - Gastrointestinal haemorrhage [Recovered/Resolved]
  - Rectal haemorrhage [Recovered/Resolved]
  - Anaemia [Recovered/Resolved]
  - Gastrooesophageal reflux disease [Unknown]
